FAERS Safety Report 9393109 (Version 1)
Quarter: 2013Q3

REPORT INFORMATION
  Report Type: Spontaneous
  Country: PT (occurrence: PT)
  Receive Date: 20130710
  Receipt Date: 20130710
  Transmission Date: 20140515
  Serious: Yes (Other)
  Sender: FDA-Public Use
  Company Number: PT-SANOFI-AVENTIS-2013SA066849

PATIENT
  Age: 74 Year
  Sex: Male
  Weight: 90 kg

DRUGS (7)
  1. RIFADIN [Suspect]
     Indication: ENDOCARDITIS
     Dosage: 80-160MG:DOSE
     Route: 048
     Dates: start: 20130426, end: 20130531
  2. GENTAMICIN [Suspect]
     Indication: ENDOCARDITIS
     Route: 042
     Dates: start: 20130426, end: 20130531
  3. VANCOMYCIN HYDROCHLORIDE [Suspect]
     Indication: ENDOCARDITIS
     Dosage: 750-1500MG:DOSE
     Route: 042
     Dates: start: 20130426, end: 20130531
  4. ACETYLSALICYLIC ACID [Concomitant]
     Indication: ENDOCARDITIS
     Route: 048
     Dates: end: 20130426
  5. FORMOTEROL [Concomitant]
     Indication: ENDOCARDITIS
     Route: 055
     Dates: end: 20130426
  6. TIOTROPIUM BROMIDE [Concomitant]
     Indication: ENDOCARDITIS
     Route: 055
     Dates: end: 20130426
  7. FLUTICASONE [Concomitant]
     Indication: ENDOCARDITIS
     Route: 055
     Dates: end: 20130426

REACTIONS (6)
  - Mucosal ulceration [Recovered/Resolved]
  - Renal failure [Recovered/Resolved]
  - Tongue ulceration [Recovered/Resolved]
  - Hypotension [Recovered/Resolved]
  - Pruritus generalised [Recovered/Resolved]
  - Rash erythematous [Recovered/Resolved]
